FAERS Safety Report 17855871 (Version 1)
Quarter: 2020Q2

REPORT INFORMATION
  Report Type: Spontaneous
  Country: CN (occurrence: CN)
  Receive Date: 20200603
  Receipt Date: 20200603
  Transmission Date: 20200714
  Serious: Yes (Other)
  Sender: FDA-Public Use
  Company Number: CN-ROCHE-2613768

PATIENT
  Age: 64 Year
  Sex: Male

DRUGS (9)
  1. GEMCITABINE. [Concomitant]
     Active Substance: GEMCITABINE
  2. PREDNISONE. [Concomitant]
     Active Substance: PREDNISONE
  3. MABTHERA [Suspect]
     Active Substance: RITUXIMAB
     Dosage: DAY0
     Route: 065
     Dates: start: 20180620
  4. VINDESINE [Concomitant]
     Active Substance: VINDESINE
  5. CYCLOPHOSPHAMIDE. [Concomitant]
     Active Substance: CYCLOPHOSPHAMIDE
  6. MABTHERA [Suspect]
     Active Substance: RITUXIMAB
     Indication: DIFFUSE LARGE B-CELL LYMPHOMA
     Dosage: DAY0
     Route: 065
     Dates: start: 20171204
  7. MABTHERA [Suspect]
     Active Substance: RITUXIMAB
     Dosage: DAY0
     Route: 065
     Dates: start: 20180419
  8. DEXAMETHASONE. [Concomitant]
     Active Substance: DEXAMETHASONE
  9. EPIRUBICIN [Concomitant]
     Active Substance: EPIRUBICIN

REACTIONS (2)
  - Infection [Unknown]
  - Agranulocytosis [Unknown]

NARRATIVE: CASE EVENT DATE: 2018
